FAERS Safety Report 17350821 (Version 1)
Quarter: 2020Q1

REPORT INFORMATION
  Report Type: Spontaneous
  Country: IT (occurrence: IT)
  Receive Date: 20200130
  Receipt Date: 20200130
  Transmission Date: 20200409
  Serious: Yes (Hospitalization)
  Sender: FDA-Public Use
  Company Number: IT-MYLANLABS-2020M1010415

PATIENT
  Age: 22 Year
  Sex: Female

DRUGS (1)
  1. PAROXETINE. [Suspect]
     Active Substance: PAROXETINE
     Indication: PRODUCT USED FOR UNKNOWN INDICATION
     Dosage: 1000 MG (TOTAL)
     Route: 048

REACTIONS (3)
  - Vomiting [Unknown]
  - Overdose [Unknown]
  - Substance abuse [Unknown]

NARRATIVE: CASE EVENT DATE: 20190408
